FAERS Safety Report 14645270 (Version 1)
Quarter: 2018Q1

REPORT INFORMATION
  Report Type: Spontaneous
  Country: FR (occurrence: FR)
  Receive Date: 20180315
  Receipt Date: 20180315
  Transmission Date: 20180509
  Serious: Yes (Other)
  Sender: FDA-Public Use
  Company Number: FR-MERCK KGAA-2043873

PATIENT
  Age: 35 Year
  Sex: Female

DRUGS (1)
  1. NOVOTHYROX [Suspect]
     Active Substance: LEVOTHYROXINE SODIUM
     Indication: PRODUCT USED FOR UNKNOWN INDICATION

REACTIONS (26)
  - Red cell distribution width increased [Recovering/Resolving]
  - Haemoglobin decreased [Recovered/Resolved]
  - Crying [None]
  - Haematocrit decreased [Recovered/Resolved]
  - Paraesthesia [None]
  - Anxiety [None]
  - Irritability [None]
  - Neutrophil count decreased [Recovered/Resolved]
  - Psoriasis [None]
  - Mean cell volume decreased [Recovered/Resolved]
  - Mean cell haemoglobin decreased [Recovered/Resolved]
  - Fatigue [None]
  - Tension [None]
  - Nervousness [None]
  - Social fear [None]
  - Asthenia [None]
  - Abdominal pain upper [None]
  - Mood swings [None]
  - Headache [None]
  - Muscle spasms [None]
  - Dizziness [None]
  - Social avoidant behaviour [None]
  - Weight decreased [None]
  - White blood cell count decreased [Recovered/Resolved]
  - Decreased appetite [None]
  - Blood thyroid stimulating hormone increased [Recovered/Resolved]

NARRATIVE: CASE EVENT DATE: 20170111
